FAERS Safety Report 19805290 (Version 2)
Quarter: 2021Q3

REPORT INFORMATION
  Report Type: Report from Study
  Country: None (occurrence: US)
  Receive Date: 20210909
  Receipt Date: 20210920
  Transmission Date: 20211014
  Serious: Yes (Hospitalization, Other)
  Sender: FDA-Public Use
  Company Number: US-ABBVIE-21K-163-4066722-00

PATIENT
  Age: 60 Year
  Sex: Female

DRUGS (1)
  1. RINVOQ [Suspect]
     Active Substance: UPADACITINIB
     Indication: RHEUMATOID ARTHRITIS
     Route: 048
     Dates: start: 202002, end: 20200826

REACTIONS (11)
  - Blindness [Not Recovered/Not Resolved]
  - COVID-19 [Recovered/Resolved]
  - Vision blurred [Not Recovered/Not Resolved]
  - Nerve injury [Recovering/Resolving]
  - Pneumonia [Recovered/Resolved]
  - Gait inability [Recovering/Resolving]
  - Coma [Recovered/Resolved]
  - Musculoskeletal disorder [Unknown]
  - Musculoskeletal disorder [Recovering/Resolving]
  - Pneumonia [Recovered/Resolved]
  - Memory impairment [Not Recovered/Not Resolved]

NARRATIVE: CASE EVENT DATE: 2020
